FAERS Safety Report 16919332 (Version 1)
Quarter: 2019Q4

REPORT INFORMATION
  Report Type: Spontaneous
  Country: US (occurrence: US)
  Receive Date: 20190822
  Receipt Date: 20190822
  Transmission Date: 20200122
  Serious: No
  Sender: FDA-Public Use
  Company Number: None

PATIENT
  Age: 59 Year
  Sex: Female

DRUGS (1)
  1. CAPECITABINE TAB 500MG [Suspect]
     Active Substance: CAPECITABINE
     Route: 048
     Dates: start: 201906

REACTIONS (9)
  - Hypoaesthesia [None]
  - Dehydration [None]
  - Decreased appetite [None]
  - Oral pain [None]
  - Skin fissures [None]
  - Skin exfoliation [None]
  - Diarrhoea [None]
  - Palmar-plantar erythrodysaesthesia syndrome [None]
  - Weight decreased [None]

NARRATIVE: CASE EVENT DATE: 20190822
